FAERS Safety Report 9012639 (Version 1)
Quarter: 2013Q1

REPORT INFORMATION
  Report Type: Spontaneous
  Country: GB (occurrence: GB)
  Receive Date: 20130114
  Receipt Date: 20130114
  Transmission Date: 20140127
  Serious: Yes (Hospitalization, Disabling, Other)
  Sender: FDA-Public Use
  Company Number: PHHY2013GB002337

PATIENT
  Age: 43 Year
  Sex: Female
  Weight: 65 kg

DRUGS (4)
  1. METHOTREXATE [Suspect]
     Indication: RHEUMATOID ARTHRITIS
     Dosage: 25 MG
     Route: 048
     Dates: start: 20110315, end: 20111015
  2. SULFASALAZINE [Concomitant]
  3. SERETIDE [Concomitant]
  4. METHOCARBAMOL [Concomitant]

REACTIONS (1)
  - Migraine [Recovering/Resolving]
